FAERS Safety Report 7449640-6 (Version None)
Quarter: 2011Q2

REPORT INFORMATION
  Report Type: 
  Country: None (occurrence: None)
  Receive Date: 20110420
  Receipt Date: 20110407
  Transmission Date: 20111010
  Serious: Yes (Other)
  Sender: FDA-Public Use
  Company Number: 2011MA003539

PATIENT
  Age: 12 Year
  Sex: Female

DRUGS (2)
  1. LEVETIRACETAM [Suspect]
     Indication: EPILEPSY
     Dosage: 25.2 MG/KG;OD
  2. VALPROIC ACID [Concomitant]

REACTIONS (2)
  - MYOCLONIC EPILEPSY [None]
  - CONDITION AGGRAVATED [None]
